FAERS Safety Report 13105024 (Version 2)
Quarter: 2017Q1

REPORT INFORMATION
  Report Type: Spontaneous
  Country: US (occurrence: US)
  Receive Date: 20170111
  Receipt Date: 20170127
  Transmission Date: 20170428
  Serious: Yes (Death, Hospitalization, Other)
  Sender: FDA-Public Use
  Company Number: US-GLAXOSMITHKLINE-US2017001660

PATIENT
  Age: 24 Year
  Sex: Male

DRUGS (1)
  1. BREO ELLIPTA [Suspect]
     Active Substance: FLUTICASONE FUROATE\VILANTEROL TRIFENATATE
     Indication: PRODUCT USED FOR UNKNOWN INDICATION
     Dosage: UNK
     Route: 055

REACTIONS (7)
  - Mechanical ventilation [Unknown]
  - Heart rate decreased [Fatal]
  - Condition aggravated [Fatal]
  - Oxygen saturation decreased [Fatal]
  - Life support [Unknown]
  - Brain injury [Fatal]
  - Dyspnoea [Unknown]

NARRATIVE: CASE EVENT DATE: 201612
